FAERS Safety Report 9180853 (Version 2)
Quarter: 2013Q2

REPORT INFORMATION
  Report Type: Spontaneous
  Country: US (occurrence: US)
  Receive Date: 20130322
  Receipt Date: 20130410
  Transmission Date: 20140414
  Serious: No
  Sender: FDA-Public Use
  Company Number: US-VERTEX PHARMACEUTICALS INC.-2013-003887

PATIENT
  Age: 55 Year
  Sex: Male
  Weight: 124 kg

DRUGS (8)
  1. INCIVEK [Suspect]
     Indication: HEPATITIS C
     Dosage: 750 MG, TID
     Route: 048
     Dates: start: 20130208
  2. RIBAVIRIN [Suspect]
     Indication: HEPATITIS C
     Dosage: 600 MG, BID
     Dates: start: 20130208
  3. PEGASYS [Suspect]
     Indication: HEPATITIS C
     Dosage: UNK
     Dates: start: 20130208
  4. PEGASYS [Suspect]
     Dosage: DOSE DECREASED
     Dates: start: 201302
  5. NEUROTIN [Concomitant]
  6. RITUXAN [Concomitant]
  7. CYMBALTA [Concomitant]
  8. PERCOCET [Concomitant]

REACTIONS (11)
  - Tinnitus [Not Recovered/Not Resolved]
  - Hyperacusis [Not Recovered/Not Resolved]
  - Neuropathy peripheral [Not Recovered/Not Resolved]
  - Influenza like illness [Not Recovered/Not Resolved]
  - Insomnia [Not Recovered/Not Resolved]
  - Pain [Not Recovered/Not Resolved]
  - Abdominal pain upper [Not Recovered/Not Resolved]
  - Disturbance in attention [Not Recovered/Not Resolved]
  - Dry mouth [Not Recovered/Not Resolved]
  - Oral discomfort [Not Recovered/Not Resolved]
  - Platelet count decreased [Not Recovered/Not Resolved]
